FAERS Safety Report 17496709 (Version 2)
Quarter: 2024Q2

REPORT INFORMATION
  Report Type: Spontaneous
  Country: US (occurrence: US)
  Receive Date: 20200304
  Receipt Date: 20240513
  Transmission Date: 20240716
  Serious: No
  Sender: FDA-Public Use
  Company Number: US-SA-2020SA052054

PATIENT
  Age: 53 Year
  Sex: Female

DRUGS (6)
  1. DUPIXENT [Suspect]
     Active Substance: DUPILUMAB
     Indication: Dermatitis atopic
     Dosage: 300 MG, QOW
     Route: 058
     Dates: start: 20200121
  2. LEVOTHYROXINE [Concomitant]
     Active Substance: LEVOTHYROXINE\LEVOTHYROXINE SODIUM
  3. IBUPROFEN [Concomitant]
     Active Substance: IBUPROFEN
  4. METHOTREXATE [Concomitant]
     Active Substance: METHOTREXATE
  5. ATORVASTATIN [Concomitant]
     Active Substance: ATORVASTATIN
  6. FOLIC ACID [Concomitant]
     Active Substance: FOLIC ACID

REACTIONS (8)
  - Lacrimation increased [Not Recovered/Not Resolved]
  - Dermatitis atopic [Not Recovered/Not Resolved]
  - Dry eye [Not Recovered/Not Resolved]
  - Eye pruritus [Not Recovered/Not Resolved]
  - Eye irritation [Unknown]
  - Pruritus [Unknown]
  - Blister [Unknown]
  - Rash [Unknown]

NARRATIVE: CASE EVENT DATE: 20200101
